FAERS Safety Report 7275679-X (Version None)
Quarter: 2011Q1

REPORT INFORMATION
  Report Type: 
  Country: None (occurrence: None)
  Receive Date: 20110131
  Receipt Date: 20110118
  Transmission Date: 20110831
  Serious: Yes (Other)
  Sender: FDA-Public Use
  Company Number: AXC-2011-000029

PATIENT
  Sex: Female

DRUGS (5)
  1. PREDNISOLONE [Concomitant]
  2. URSODEOXYCHOLIC ACID (URSODEOXYCHOLIC ACID) UNKNOWN [Suspect]
     Indication: AUTOIMMUNE HEPATITIS
     Dosage: 15 MG/KG, QD,
  3. URSODEOXYCHOLIC ACID (URSODEOXYCHOLIC ACID) UNKNOWN [Suspect]
     Indication: BILIARY CIRRHOSIS PRIMARY
     Dosage: 15 MG/KG, QD,
  4. AZATHIOPRINE [Concomitant]
  5. ACE INHIBITOR NOS [Concomitant]

REACTIONS (4)
  - BILIARY CIRRHOSIS PRIMARY [None]
  - OESOPHAGEAL VARICES HAEMORRHAGE [None]
  - DISEASE PROGRESSION [None]
  - AUTOIMMUNE HEPATITIS [None]
